FAERS Safety Report 17176626 (Version 2)
Quarter: 2021Q1

REPORT INFORMATION
  Report Type: Report from Study
  Country: JP (occurrence: JP)
  Receive Date: 20191219
  Receipt Date: 20210122
  Transmission Date: 20210419
  Serious: Yes (Death, Hospitalization, Other)
  Sender: FDA-Public Use
  Company Number: JP-ASTELLAS-2019JP028828

PATIENT
  Age: 64 Year
  Sex: Male
  Weight: 37 kg

DRUGS (16)
  1. SODIUM CHLORIDE. [Concomitant]
     Active Substance: SODIUM CHLORIDE
     Indication: SYNCOPE
  2. ENSURE [NUTRIENTS NOS] [Concomitant]
     Indication: DECREASED APPETITE
     Dosage: 1 CAN/NO APPETITE TIME, AS NEEDED
     Route: 048
     Dates: start: 20191107, end: 20191128
  3. CRAVIT [Concomitant]
     Active Substance: LEVOFLOXACIN
     Indication: PROPHYLAXIS
     Dosage: 500 MG/DAY, UNKNOWN FREQ.
     Route: 048
     Dates: end: 20191128
  4. CONCENTRATED RED CELLS [Concomitant]
     Active Substance: HUMAN RED BLOOD CELL
     Indication: ANAEMIA
     Route: 065
     Dates: end: 20191128
  5. PLATELETS [Concomitant]
     Active Substance: HUMAN PLATELET, ALLOGENIC
     Indication: THROMBOCYTOPENIA
     Route: 065
     Dates: end: 20191128
  6. ASP2215 [Suspect]
     Active Substance: GILTERITINIB
     Indication: ACUTE MYELOID LEUKAEMIA RECURRENT
     Route: 048
     Dates: start: 20190722, end: 20191129
  7. AMLODIN [Concomitant]
     Active Substance: AMLODIPINE BESYLATE
     Indication: HYPERTENSION
     Dosage: 5 MG/DAY, UNKNOWN FREQ.
     Route: 048
     Dates: end: 20191128
  8. PARIET [Concomitant]
     Active Substance: RABEPRAZOLE SODIUM
     Indication: PROPHYLAXIS
     Dosage: 10 MG/DAY, UNKNOWN FREQ.
     Route: 048
     Dates: end: 20191128
  9. AZULENE [SODIUM GUALENATE HYDRATE] [Concomitant]
     Indication: STOMATITIS
     Dosage: GARGLE WITH AN APPROPRIATE AMOUNT, THRICE DAILY
     Route: 050
     Dates: end: 20191128
  10. SODIUM CHLORIDE. [Concomitant]
     Active Substance: SODIUM CHLORIDE
     Indication: HYPOTENSION
     Dosage: 500 ML/DAY, UNKNOWN FREQ.
     Route: 065
     Dates: start: 20191128, end: 20191128
  11. FUROSEMIDE. [Concomitant]
     Active Substance: FUROSEMIDE
     Indication: PLEURAL EFFUSION
     Dosage: 40 MG/DAY, UNKNOWN FREQ.
     Route: 048
     Dates: end: 20191128
  12. MAGMITT [Concomitant]
     Active Substance: MAGNESIUM OXIDE
     Indication: CONSTIPATION
     Dosage: 1980 MG/DAY, UNKNOWN FREQ.
     Route: 048
     Dates: end: 20191128
  13. APHTASOLON [Concomitant]
     Indication: STOMATITIS
     Dosage: APPLICATION WITH AN APPROPRIATE AMOUNT, TWICE DAILY
     Route: 050
     Dates: end: 20191128
  14. JADENU [Concomitant]
     Active Substance: DEFERASIROX
     Indication: IRON OVERLOAD
     Dosage: 180 MG/DAY, UNKNOWN FREQ.
     Route: 048
     Dates: end: 20191128
  15. FUNGIZONE [Concomitant]
     Active Substance: AMPHOTERICIN B
     Indication: STOMATITIS
     Dosage: GARGLE WITH AN APPROPRIATE AMOUNT, THRICE DAILY
     Route: 050
     Dates: end: 20191128
  16. MIYA?BM [Concomitant]
     Active Substance: CLOSTRIDIUM BUTYRICUM SPORES STRAIN M-55
     Indication: CONSTIPATION
     Dosage: 3 DF/DAY, UNKNOWN FREQ.
     Route: 048
     Dates: end: 20191128

REACTIONS (10)
  - Malaise [Not Recovered/Not Resolved]
  - Hypotension [Recovered/Resolved]
  - Decreased appetite [Not Recovered/Not Resolved]
  - Blood urea increased [Not Recovered/Not Resolved]
  - Syncope [Recovered/Resolved]
  - Intestinal obstruction [Fatal]
  - Intestinal ischaemia [Fatal]
  - Blood creatinine increased [Not Recovered/Not Resolved]
  - Gastrointestinal necrosis [Fatal]
  - Dehydration [Recovering/Resolving]

NARRATIVE: CASE EVENT DATE: 20190827
